FAERS Safety Report 21790528 (Version 1)
Quarter: 2022Q4

REPORT INFORMATION
  Report Type: Report from Study
  Country: US (occurrence: US)
  Receive Date: 20221228
  Receipt Date: 20221228
  Transmission Date: 20230112
  Serious: No
  Sender: FDA-Public Use
  Company Number: US-CLOVIS ONCOLOGY-CLO-2022-000409

PATIENT
  Sex: Female

DRUGS (1)
  1. RUBRACA [Suspect]
     Active Substance: RUCAPARIB CAMSYLATE
     Indication: Ovarian cancer
     Dosage: 200MG QAM, 400MG QPM
     Route: 048
     Dates: start: 20200604

REACTIONS (7)
  - Adverse event [Unknown]
  - Hyperhidrosis [Unknown]
  - Headache [Unknown]
  - Flushing [Unknown]
  - Rash [Not Recovered/Not Resolved]
  - Abdominal discomfort [Unknown]
  - Product dose omission in error [Unknown]
